FAERS Safety Report 18592471 (Version 1)
Quarter: 2020Q4

REPORT INFORMATION
  Report Type: Spontaneous
  Country: JP (occurrence: JP)
  Receive Date: 20201209
  Receipt Date: 20201209
  Transmission Date: 20210114
  Serious: Yes (Hospitalization)
  Sender: FDA-Public Use
  Company Number: JP-AMGEN-JPNSP2020198835

PATIENT
  Age: 71 Year
  Sex: Female

DRUGS (21)
  1. DECADRON [Suspect]
     Active Substance: DEXAMETHASONE
     Indication: VOMITING
     Dosage: 8 MG
     Route: 048
     Dates: start: 20200610, end: 20200611
  2. CYCLOPHOSPHAMIDE. [Concomitant]
     Active Substance: CYCLOPHOSPHAMIDE
     Dosage: 600 MG/M2
     Route: 041
     Dates: start: 20200707, end: 20200707
  3. CYCLOPHOSPHAMIDE. [Concomitant]
     Active Substance: CYCLOPHOSPHAMIDE
     Dosage: 600 MG/M2
     Route: 041
     Dates: start: 20200721, end: 20200721
  4. EMEND [Concomitant]
     Active Substance: APREPITANT
     Indication: VOMITING
     Dosage: UNK
     Route: 048
     Dates: start: 20200610, end: 20200612
  5. DECADRON [Suspect]
     Active Substance: DEXAMETHASONE
     Dosage: 8 MG
     Route: 048
     Dates: start: 20200722
  6. OLANZAPINE OD [Concomitant]
     Active Substance: OLANZAPINE
     Dosage: 5 MG
     Route: 048
     Dates: start: 20200708, end: 20200712
  7. EPIRUBICIN HYDROCHLORIDE. [Concomitant]
     Active Substance: EPIRUBICIN HYDROCHLORIDE
     Dosage: 90 MG/M2
     Route: 041
     Dates: start: 20200721, end: 20200721
  8. OLANZAPINE OD [Concomitant]
     Active Substance: OLANZAPINE
     Indication: VOMITING
     Dosage: 5 MG
     Route: 048
     Dates: start: 20200610, end: 20200614
  9. DECADRON [Suspect]
     Active Substance: DEXAMETHASONE
     Dosage: 8 MG
     Route: 048
     Dates: start: 20200625, end: 20200626
  10. CYCLOPHOSPHAMIDE. [Concomitant]
     Active Substance: CYCLOPHOSPHAMIDE
     Dosage: 600 MG/M2
     Route: 041
     Dates: start: 20200624, end: 20200624
  11. EMEND [Concomitant]
     Active Substance: APREPITANT
     Dosage: UNK
     Route: 048
     Dates: start: 20200625, end: 20200627
  12. G-LASTA [Suspect]
     Active Substance: PEGFILGRASTIM
     Indication: COLONY STIMULATING FACTOR THERAPY
     Dosage: 3.6 MG
     Route: 058
     Dates: start: 20200613
  13. EPIRUBICIN HYDROCHLORIDE. [Concomitant]
     Active Substance: EPIRUBICIN HYDROCHLORIDE
     Dosage: 90 MG/M2
     Route: 041
     Dates: start: 20200624, end: 20200624
  14. EMEND [Concomitant]
     Active Substance: APREPITANT
     Dosage: UNK
     Route: 048
     Dates: start: 20200708, end: 20200710
  15. EMEND [Concomitant]
     Active Substance: APREPITANT
     Dosage: UNK
     Route: 048
     Dates: start: 20200722, end: 20200724
  16. DECADRON [Suspect]
     Active Substance: DEXAMETHASONE
     Dosage: 8 MG
     Route: 048
     Dates: start: 20200708, end: 20200709
  17. CYCLOPHOSPHAMIDE. [Concomitant]
     Active Substance: CYCLOPHOSPHAMIDE
     Indication: BREAST CANCER STAGE II
     Dosage: 600 MG/M2
     Route: 041
     Dates: start: 20200609, end: 20200609
  18. OLANZAPINE OD [Concomitant]
     Active Substance: OLANZAPINE
     Dosage: 5 MG
     Route: 048
     Dates: start: 20200722, end: 20200726
  19. EPIRUBICIN HYDROCHLORIDE. [Concomitant]
     Active Substance: EPIRUBICIN HYDROCHLORIDE
     Dosage: 90 MG/M2
     Route: 041
     Dates: start: 20200707, end: 20200707
  20. OLANZAPINE OD [Concomitant]
     Active Substance: OLANZAPINE
     Dosage: 5 MG
     Route: 048
     Dates: start: 20200625, end: 20200629
  21. EPIRUBICIN HYDROCHLORIDE. [Concomitant]
     Active Substance: EPIRUBICIN HYDROCHLORIDE
     Indication: BREAST CANCER STAGE II
     Dosage: 90 MG/M2
     Route: 041
     Dates: start: 20200609, end: 20200609

REACTIONS (1)
  - Pneumocystis jirovecii pneumonia [Recovering/Resolving]

NARRATIVE: CASE EVENT DATE: 20200721
